FAERS Safety Report 5706342-1 (Version None)
Quarter: 2008Q2

REPORT INFORMATION
  Report Type: 
  Country: None (occurrence: None)
  Receive Date: 20080411
  Receipt Date: 20080328
  Transmission Date: 20081010
  Serious: Yes (Other)
  Sender: FDA-Public Use
  Company Number: 2008SI005148

PATIENT
  Age: 29 Year
  Sex: Female

DRUGS (4)
  1. ENDEP [Suspect]
     Indication: DEPRESSION
     Dosage: ORAL
     Route: 048
     Dates: start: 20080208
  2. TRAMADOL HCL [Suspect]
     Dosage: ORAL
     Route: 048
     Dates: start: 20080208, end: 20080210
  3. RESTAVIT [Concomitant]
  4. DIGESIC [Concomitant]

REACTIONS (8)
  - ABNORMAL BEHAVIOUR [None]
  - ANOREXIA [None]
  - ANXIETY [None]
  - CONVULSION [None]
  - MOOD ALTERED [None]
  - SPOUSAL ABUSE [None]
  - STRESS [None]
  - SUICIDAL IDEATION [None]
